FAERS Safety Report 20064546 (Version 1)
Quarter: 2021Q4

REPORT INFORMATION
  Report Type: Spontaneous
  Country: US (occurrence: None)
  Receive Date: 20211112
  Receipt Date: 20211112
  Transmission Date: 20220303
  Serious: Yes (Other)
  Sender: FDA-Public Use
  Company Number: None

PATIENT
  Age: 62 Year
  Sex: Female
  Weight: 65.25 kg

DRUGS (23)
  1. NICOTINE TRANSDERMAL SYSTEM [Suspect]
     Active Substance: NICOTINE
     Indication: Smoking cessation therapy
     Dosage: OTHER QUANTITY : 1 PATCH(ES);?FREQUENCY : DAILY;?
     Route: 062
     Dates: start: 20211101, end: 20211109
  2. METOPROLOL [Concomitant]
     Active Substance: METOPROLOL
  3. TRAZODONE [Concomitant]
     Active Substance: TRAZODONE HYDROCHLORIDE
  4. MONTELUKAST [Concomitant]
     Active Substance: MONTELUKAST SODIUM
  5. DULOXETINE [Concomitant]
     Active Substance: DULOXETINE
  6. BUSPIRONE [Concomitant]
     Active Substance: BUSPIRONE HYDROCHLORIDE
  7. PANTOPRAZOLE [Concomitant]
     Active Substance: PANTOPRAZOLE
  8. LORATADINE [Concomitant]
     Active Substance: LORATADINE
  9. TOPIRAMATE [Concomitant]
     Active Substance: TOPIRAMATE
  10. ALBUTEROL SULFATE [Concomitant]
     Active Substance: ALBUTEROL SULFATE
  11. AZELASTINE [Concomitant]
     Active Substance: AZELASTINE
  12. FLONASE [Concomitant]
     Active Substance: FLUTICASONE PROPIONATE
  13. nitroglycerin sublingual tablets [Concomitant]
  14. budesonide oral capsules [Concomitant]
  15. super vitamin b complex [Concomitant]
  16. FISH OIL [Concomitant]
     Active Substance: FISH OIL
  17. MAGNESIUM [Concomitant]
     Active Substance: MAGNESIUM
  18. BIOTIN [Concomitant]
     Active Substance: BIOTIN
  19. VITAMIN C [Concomitant]
     Active Substance: ASCORBIC ACID
  20. VITAMINS [Concomitant]
     Active Substance: VITAMINS
  21. PROBIOTICS NOS [Concomitant]
     Active Substance: PROBIOTICS NOS
  22. VITAMIN D3 [Concomitant]
     Active Substance: CHOLECALCIFEROL
  23. FLAXSEED [Concomitant]
     Active Substance: FLAX SEED

REACTIONS (6)
  - Pain in extremity [None]
  - Pruritus [None]
  - Rash [None]
  - Blister [None]
  - Swelling [None]
  - Device leakage [None]

NARRATIVE: CASE EVENT DATE: 20211101
